FAERS Safety Report 5094714-0 (Version None)
Quarter: 2006Q3

REPORT INFORMATION
  Report Type: 
  Country: None (occurrence: None)
  Receive Date: 20060731
  Receipt Date: 20060411
  Transmission Date: 20061208
  Serious: No
  Sender: FDA-Public Use
  Company Number: 2006PV011944

PATIENT
  Age: 50 Year
  Sex: Female
  Weight: 145.151 kg

DRUGS (4)
  1. BYETTA [Suspect]
     Dosage: 5 MCG;BID;SC
     Route: 058
     Dates: start: 20060409
  2. METFORMIN HCL [Concomitant]
  3. ACTOS [Concomitant]
  4. AMARYL [Concomitant]

REACTIONS (2)
  - NAUSEA [None]
  - PAIN [None]
